FAERS Safety Report 8851923 (Version 1)
Quarter: 2012Q4

REPORT INFORMATION
  Report Type: 
  Country: GB (occurrence: GB)
  Receive Date: 20121022
  Receipt Date: 20121022
  Transmission Date: 20130627
  Serious: Yes (Other)
  Sender: FDA-Public Use
  Company Number: GB-BAYER-2012-108114

PATIENT
  Age: 28 Year
  Sex: Female
  Weight: 68 kg

DRUGS (1)
  1. MIRENA [Suspect]
     Indication: CONTRACEPTION
     Dosage: 20 UNK, UNK
     Dates: start: 20120719, end: 20120918

REACTIONS (3)
  - Dizziness [Recovering/Resolving]
  - Migraine [Recovering/Resolving]
  - Photophobia [Recovering/Resolving]
